FAERS Safety Report 12676246 (Version 1)
Quarter: 2016Q3

REPORT INFORMATION
  Report Type: Spontaneous
  Country: US (occurrence: None)
  Receive Date: 20160822
  Receipt Date: 20160822
  Transmission Date: 20161109
  Serious: Yes (Other)
  Sender: FDA-Public Use
  Company Number: None

PATIENT

DRUGS (1)
  1. CLINDAMYCIN [Suspect]
     Active Substance: CLINDAMYCIN\CLINDAMYCIN PHOSPHATE
     Indication: GROIN ABSCESS
     Dosage: 30   1 CAP EVERY 8 HRS. FOR 10 DAYS BY MOUTH??10 DAYS LATER
     Route: 048
     Dates: start: 20160507

REACTIONS (1)
  - Clostridium difficile colitis [None]
